FAERS Safety Report 23091054 (Version 1)
Quarter: 2023Q4

REPORT INFORMATION
  Report Type: Spontaneous
  Country: US (occurrence: US)
  Receive Date: 20231020
  Receipt Date: 20231020
  Transmission Date: 20240110
  Serious: No
  Sender: FDA-Public Use
  Company Number: US-BRISTOL-MYERS SQUIBB COMPANY-2023-149444

PATIENT
  Age: 79 Year
  Sex: Male
  Weight: 99.79 kg

DRUGS (1)
  1. POMALYST [Suspect]
     Active Substance: POMALIDOMIDE
     Indication: Plasma cell myeloma
     Dosage: FREQ: DAILY 1-21, THEN 7 DAYS OFF
     Route: 048
     Dates: start: 20230809

REACTIONS (1)
  - Anaemia [Recovering/Resolving]
